FAERS Safety Report 4380088-7 (Version None)
Quarter: 2004Q2

REPORT INFORMATION
  Report Type: 
  Country: None (occurrence: None)
  Receive Date: 20040614
  Receipt Date: 20040218
  Transmission Date: 20050107
  Serious: No
  Sender: FDA-Public Use
  Company Number: M04-341-042

PATIENT
  Age: 60 Year
  Sex: Male
  Weight: 74 kg

DRUGS (1)
  1. VELCADE [Suspect]
     Indication: MULTIPLE MYELOMA
     Dosage: 1.3 MG/M2: INTRAVENOUS BOLUS
     Route: 040
     Dates: start: 20031027, end: 20040106

REACTIONS (4)
  - DYSGEUSIA [None]
  - DYSPEPSIA [None]
  - DYSPHAGIA [None]
  - WEIGHT DECREASED [None]
